FAERS Safety Report 13839847 (Version 2)
Quarter: 2017Q3

REPORT INFORMATION
  Report Type: Spontaneous
  Country: TW (occurrence: TW)
  Receive Date: 20170807
  Receipt Date: 20170828
  Transmission Date: 20171127
  Serious: Yes (Other)
  Sender: FDA-Public Use
  Company Number: TW-BAYER-2017-142779

PATIENT
  Age: 72 Year
  Sex: Male

DRUGS (1)
  1. CIPROXIN [Suspect]
     Active Substance: CIPROFLOXACIN
     Dosage: UNK

REACTIONS (7)
  - Acute respiratory failure [None]
  - Septic shock [None]
  - Interstitial lung disease [None]
  - Pneumonia [None]
  - Infection [None]
  - Diabetes mellitus [None]
  - Acute kidney injury [None]
